FAERS Safety Report 10143063 (Version 1)
Quarter: 2014Q2

REPORT INFORMATION
  Report Type: Spontaneous
  Country: IT (occurrence: None)
  Receive Date: 20140428
  Receipt Date: 20140428
  Transmission Date: 20141212
  Serious: Yes (Other)
  Sender: FDA-Public Use
  Company Number: AUR-APL-2014-05026

PATIENT
  Age: 76 Year
  Sex: Male

DRUGS (7)
  1. BISOPROLOL (BISOPROLOL) [Suspect]
     Indication: ANGINA PECTORIS
     Dates: start: 20140227, end: 20140307
  2. CASODEX (BICALUTAMIDE) [Concomitant]
  3. PLAVIX (CLOPIDOGREL BISULFATE) (CLOPIDOGREL BISULFATE) [Concomitant]
  4. CLETUS (CILOSTAZOL) [Concomitant]
  5. MINITRAN (GLYCERYL TRINITRATE) [Concomitant]
  6. TORVAST (ATORVASTATIN CALCIUM) [Concomitant]
  7. ENALAPRIL (ENALAPRIL) [Concomitant]

REACTIONS (6)
  - Sinus bradycardia [None]
  - Medication error [None]
  - Overdose [None]
  - Asthenia [None]
  - Vertigo [None]
  - Extra dose administered [None]
